FAERS Safety Report 10215418 (Version 1)
Quarter: 2014Q2

REPORT INFORMATION
  Report Type: Spontaneous
  Country: DE (occurrence: DE)
  Receive Date: 20140604
  Receipt Date: 20140604
  Transmission Date: 20141212
  Serious: Yes (Hospitalization, Other)
  Sender: FDA-Public Use
  Company Number: GXKR2014DE002105

PATIENT
  Age: 65 Year
  Sex: Male

DRUGS (6)
  1. ATORVASTATIN [Suspect]
     Indication: HYPERCHOLESTEROLAEMIA
     Dosage: 80 MG, QD
     Route: 048
  2. CICLOSPORIN [Interacting]
  3. METFORMIN [Interacting]
     Route: 048
  4. ENALAPRIL [Interacting]
     Route: 048
  5. AZATHIOPRINE [Interacting]
  6. PREDNISON [Interacting]

REACTIONS (4)
  - Rhabdomyolysis [Unknown]
  - Myalgia [Unknown]
  - Oliguria [Unknown]
  - Drug interaction [Unknown]
